FAERS Safety Report 8771980 (Version 2)
Quarter: 2013Q2

REPORT INFORMATION
  Report Type: Report from Study
  Country: MX (occurrence: MX)
  Receive Date: 20120904
  Receipt Date: 20130517
  Transmission Date: 20140414
  Serious: Yes (Death)
  Sender: FDA-Public Use
  Company Number: PHHY2012MX076466

PATIENT
  Age: 77 Year
  Sex: Male

DRUGS (3)
  1. RASILEZ [Suspect]
     Indication: HYPERTENSION
     Dosage: 1 DF (300 MG)A DAY
     Dates: end: 201207
  2. CO-DIOVAN [Suspect]
     Dosage: UNK UKN, QD
     Dates: end: 201207
  3. ASPIRIN PROTECT [Concomitant]
     Indication: CARDIAC DISORDER
     Dosage: UNK UKN, QD

REACTIONS (1)
  - Respiratory arrest [Fatal]
